FAERS Safety Report 12889219 (Version 4)
Quarter: 2016Q4

REPORT INFORMATION
  Report Type: Spontaneous
  Country: DZ (occurrence: DZ)
  Receive Date: 20161027
  Receipt Date: 20161205
  Transmission Date: 20170207
  Serious: Yes (Other)
  Sender: FDA-Public Use
  Company Number: PHHY2016DZ145542

PATIENT
  Age: 63 Year
  Sex: Female

DRUGS (3)
  1. TASIGNA [Suspect]
     Active Substance: NILOTINIB
     Indication: CHRONIC MYELOID LEUKAEMIA
     Dosage: 800 MG, BID
     Route: 048
     Dates: start: 20151207, end: 20160606
  2. TASIGNA [Suspect]
     Active Substance: NILOTINIB
     Dosage: 400 MG, UNK
     Route: 048
     Dates: start: 20160606, end: 20160926
  3. TASIGNA [Suspect]
     Active Substance: NILOTINIB
     Dosage: 800 MG, UNK
     Route: 048
     Dates: start: 20160926

REACTIONS (5)
  - Fatigue [Unknown]
  - Gait disturbance [Unknown]
  - Arteriosclerosis [Recovered/Resolved]
  - Fall [Unknown]
  - Limb discomfort [Recovered/Resolved]

NARRATIVE: CASE EVENT DATE: 20160523
